FAERS Safety Report 8530037-2 (Version None)
Quarter: 2012Q3

REPORT INFORMATION
  Report Type: 
  Country: None (occurrence: None)
  Receive Date: 20120723
  Receipt Date: 20120713
  Transmission Date: 20120928
  Serious: Yes (Other)
  Sender: FDA-Public Use
  Company Number: US-JNJFOC-20120708383

PATIENT
  Age: 8 Year
  Sex: Male

DRUGS (3)
  1. AMOXICILLIN [Concomitant]
     Indication: SINUSITIS
     Route: 048
     Dates: start: 20120601, end: 20120626
  2. CONCERTA [Suspect]
     Indication: ATTENTION DEFICIT/HYPERACTIVITY DISORDER
     Route: 048
     Dates: start: 20110501
  3. ANTI-SEIZURE MEDICATION [Concomitant]
     Indication: CONVULSION
     Route: 048
     Dates: start: 20120101, end: 20120626

REACTIONS (4)
  - CONVULSION [None]
  - SINUSITIS [None]
  - ENCEPHALOPATHY [None]
  - ABDOMINAL PAIN [None]
